FAERS Safety Report 15579098 (Version 1)
Quarter: 2018Q4

REPORT INFORMATION
  Report Type: Spontaneous
  Country: US (occurrence: US)
  Receive Date: 20181102
  Receipt Date: 20181102
  Transmission Date: 20190205
  Serious: No
  Sender: FDA-Public Use
  Company Number: US-TEVA-2018-US-970678

PATIENT
  Sex: Female

DRUGS (4)
  1. TECFIDERA [Suspect]
     Active Substance: DIMETHYL FUMARATE
     Dosage: OVER THE LAST 16 YEARS
     Route: 065
  2. REBIF [Suspect]
     Active Substance: INTERFERON BETA-1A
     Dosage: OVER THE LAST 16 YEARS
     Route: 065
  3. COPAXONE [Suspect]
     Active Substance: GLATIRAMER ACETATE
     Dosage: FORM STRENGTH: UNKNOWN?OVER THE LAST 16 YEARS
     Route: 065
  4. AVONEX [Suspect]
     Active Substance: INTERFERON BETA-1A
     Dosage: OVER THE LAST 16 YEARS
     Route: 065

REACTIONS (1)
  - Adverse drug reaction [Unknown]
